FAERS Safety Report 16841555 (Version 1)
Quarter: 2019Q3

REPORT INFORMATION
  Report Type: Spontaneous
  Country: DE (occurrence: DE)
  Receive Date: 20190923
  Receipt Date: 20190923
  Transmission Date: 20191005
  Serious: Yes (Other)
  Sender: FDA-Public Use
  Company Number: DE-ASTRAZENECA-2019SF34817

PATIENT
  Age: 53 Year
  Sex: Male

DRUGS (1)
  1. ASCOTOP NASAL NASENSPRAY, LOESUNG UNK [Suspect]
     Active Substance: ZOLMITRIPTAN
     Indication: PRODUCT USED FOR UNKNOWN INDICATION
     Dosage: UNK
     Route: 045

REACTIONS (5)
  - Feeling hot [Unknown]
  - Headache [Unknown]
  - Epilepsy [Unknown]
  - Illusion [Unknown]
  - Dizziness [Unknown]

NARRATIVE: CASE EVENT DATE: 20190207
